FAERS Safety Report 9535775 (Version 5)
Quarter: 2013Q4

REPORT INFORMATION
  Report Type: Report from Study
  Country: FR (occurrence: FR)
  Receive Date: 20130919
  Receipt Date: 20131111
  Transmission Date: 20140711
  Serious: Yes (Death, Hospitalization)
  Sender: FDA-Public Use
  Company Number: FR-ROCHE-1276571

PATIENT
  Age: 51 Year
  Sex: Female

DRUGS (17)
  1. PEG-INTERFERON ALFA 2A [Suspect]
     Indication: HEPATITIS C
     Route: 058
     Dates: start: 20130506, end: 20130829
  2. PEG-INTERFERON ALFA 2A [Suspect]
     Route: 058
     Dates: start: 20130830, end: 20131019
  3. RIBAVIRIN [Suspect]
     Indication: HEPATITIS C
     Route: 048
     Dates: start: 20130506, end: 20130829
  4. RIBAVIRIN [Suspect]
     Route: 048
     Dates: start: 20130830
  5. ASUNAPREVIR [Suspect]
     Indication: HEPATITIS C
     Route: 048
     Dates: start: 20130603, end: 20131019
  6. DACLATASVIR [Suspect]
     Indication: HEPATITIS C
     Route: 048
     Dates: start: 20130603, end: 20131019
  7. ISENTRESS [Concomitant]
     Route: 065
     Dates: start: 20130122
  8. TRUVADA [Concomitant]
     Route: 065
     Dates: start: 20130122
  9. NEORECORMON [Concomitant]
     Route: 065
     Dates: start: 20130731
  10. VENTOLINE [Concomitant]
     Route: 065
     Dates: start: 20130822
  11. TAHOR [Concomitant]
     Route: 065
     Dates: start: 20121204
  12. IMIQUIMOD [Concomitant]
  13. DIFFU-K [Concomitant]
     Route: 065
     Dates: start: 20130907
  14. VITAMIN D3 [Concomitant]
     Route: 065
     Dates: start: 20100916
  15. DOLIPRANE [Concomitant]
     Route: 065
     Dates: start: 20130830
  16. FLUCONAZOLE [Concomitant]
  17. VALACICLOVIR [Concomitant]

REACTIONS (9)
  - Pneumonia [Unknown]
  - Renal failure [Unknown]
  - Dehydration [Recovered/Resolved]
  - Anaemia [Unknown]
  - Epilepsy [Not Recovered/Not Resolved]
  - Intracranial haematoma [Not Recovered/Not Resolved]
  - Dehydration [Not Recovered/Not Resolved]
  - Cardiac arrest [Fatal]
  - Respiratory distress [Fatal]
